FAERS Safety Report 21706599 (Version 14)
Quarter: 2023Q4

REPORT INFORMATION
  Report Type: Spontaneous
  Country: US (occurrence: US)
  Receive Date: 20221209
  Receipt Date: 20231212
  Transmission Date: 20240110
  Serious: Yes (Other)
  Sender: FDA-Public Use
  Company Number: US-PFIZER INC-PV202200114973

PATIENT
  Age: 77 Year
  Sex: Female

DRUGS (4)
  1. TALZENNA [Suspect]
     Active Substance: TALAZOPARIB TOSYLATE
     Indication: Breast cancer stage IV
     Dosage: 1 MG
  2. TALZENNA [Suspect]
     Active Substance: TALAZOPARIB TOSYLATE
     Dosage: 0.5 MG
  3. TALZENNA [Suspect]
     Active Substance: TALAZOPARIB TOSYLATE
     Dosage: 0.25 MG, 2X/DAY
     Dates: start: 202211
  4. TALZENNA [Suspect]
     Active Substance: TALAZOPARIB TOSYLATE
     Dosage: TAKE 2 CAPSULE EVERY NIGHT
     Route: 048

REACTIONS (9)
  - Weight decreased [Unknown]
  - Full blood count decreased [Unknown]
  - Lymphoedema [Not Recovered/Not Resolved]
  - Mobility decreased [Not Recovered/Not Resolved]
  - Neoplasm progression [Unknown]
  - Emotional disorder [Unknown]
  - Off label use [Unknown]
  - Product prescribing error [Unknown]
  - Wrong technique in product usage process [Unknown]
